FAERS Safety Report 9744338 (Version 1)
Quarter: 2013Q4

REPORT INFORMATION
  Report Type: Spontaneous
  Country: US (occurrence: US)
  Receive Date: 20131210
  Receipt Date: 20131210
  Transmission Date: 20140711
  Serious: Yes (Other)
  Sender: FDA-Public Use
  Company Number: CHPA2013US018065

PATIENT
  Age: 78 Year
  Sex: Female

DRUGS (1)
  1. VOLTAREN GEL [Suspect]
     Indication: OFF LABEL USE
     Dosage: UNK, QD
     Route: 061

REACTIONS (3)
  - Compression fracture [Unknown]
  - Fall [Unknown]
  - Back pain [Unknown]
